FAERS Safety Report 19281367 (Version 4)
Quarter: 2022Q1

REPORT INFORMATION
  Report Type: Spontaneous
  Country: JP (occurrence: JP)
  Receive Date: 20210521
  Receipt Date: 20220127
  Transmission Date: 20220423
  Serious: Yes (Death, Other)
  Sender: FDA-Public Use
  Company Number: JP-CHUGAI-2021000867AA

PATIENT
  Age: 65 Year
  Sex: Male
  Weight: 45 kg

DRUGS (4)
  1. TECENTRIQ [Suspect]
     Active Substance: ATEZOLIZUMAB
     Indication: Hepatocellular carcinoma
     Route: 041
     Dates: start: 20210329, end: 20210423
  2. AVASTIN [Suspect]
     Active Substance: BEVACIZUMAB
     Indication: Hepatocellular carcinoma
     Route: 041
     Dates: start: 20210329, end: 20210423
  3. CARVEDILOL [Concomitant]
     Active Substance: CARVEDILOL
     Dosage: UNK MILLIGRAM
     Dates: start: 20210319
  4. CANDESARTAN [Concomitant]
     Active Substance: CANDESARTAN
     Dosage: UNK
     Route: 048
     Dates: start: 20210319

REACTIONS (4)
  - Diverticular perforation [Fatal]
  - Peritonitis [Unknown]
  - Biliary tract disorder [Unknown]
  - Failure to anastomose [Unknown]

NARRATIVE: CASE EVENT DATE: 20210501
